FAERS Safety Report 6428918-9 (Version None)
Quarter: 2009Q4

REPORT INFORMATION
  Report Type: 
  Country: None (occurrence: None)
  Receive Date: 20091104
  Receipt Date: 20091104
  Transmission Date: 20100525
  Serious: Yes (Other)
  Sender: FDA-Public Use
  Company Number: None

PATIENT
  Age: 35 Year
  Sex: Male
  Weight: 131.5431 kg

DRUGS (1)
  1. AVAPRO [Suspect]
     Indication: HYPERTENSION
     Dates: start: 20090907, end: 20090930

REACTIONS (6)
  - BLEPHAROSPASM [None]
  - DEPRESSION [None]
  - HYPOAESTHESIA [None]
  - NAUSEA [None]
  - PYREXIA [None]
  - VOMITING [None]
